FAERS Safety Report 6911327-3 (Version None)
Quarter: 2010Q3

REPORT INFORMATION
  Report Type: 
  Country: None (occurrence: None)
  Receive Date: 20100806
  Receipt Date: 20100730
  Transmission Date: 20110219
  Serious: Yes (Other)
  Sender: FDA-Public Use
  Company Number: US-JNJFOC-20100800497

PATIENT
  Age: 76 Year
  Sex: Female
  Weight: 54.43 kg

DRUGS (2)
  1. MOTRIN IB [Suspect]
     Route: 048
  2. MOTRIN IB [Suspect]
     Indication: BACK PAIN
     Route: 048

REACTIONS (2)
  - EXPIRED DRUG ADMINISTERED [None]
  - HALLUCINATION [None]
